FAERS Safety Report 23433554 (Version 1)
Quarter: 2024Q1

REPORT INFORMATION
  Report Type: Spontaneous
  Country: US (occurrence: US)
  Receive Date: 20240123
  Receipt Date: 20240123
  Transmission Date: 20240409
  Serious: No
  Sender: FDA-Public Use
  Company Number: US-PFIZER INC-PV202400009175

PATIENT
  Age: 68 Year
  Sex: Female

DRUGS (3)
  1. AROMASIN [Suspect]
     Active Substance: EXEMESTANE
     Dosage: UNK
  2. KISQALI [Suspect]
     Active Substance: RIBOCICLIB
     Dosage: UNK
  3. KISQALI [Suspect]
     Active Substance: RIBOCICLIB
     Dosage: 400 MG

REACTIONS (8)
  - Premenstrual syndrome [Recovering/Resolving]
  - Intervertebral disc protrusion [Recovering/Resolving]
  - Fatigue [Not Recovered/Not Resolved]
  - Back pain [Not Recovered/Not Resolved]
  - Pain [Recovered/Resolved]
  - Nausea [Recovered/Resolved]
  - Inflammation [Recovering/Resolving]
  - Swelling [Recovering/Resolving]
